FAERS Safety Report 15707199 (Version 1)
Quarter: 2018Q4

REPORT INFORMATION
  Report Type: Spontaneous
  Country: US (occurrence: US)
  Receive Date: 20181127
  Receipt Date: 20181127
  Transmission Date: 20190205
  Serious: No
  Sender: FDA-Public Use
  Company Number: None

PATIENT

DRUGS (1)
  1. SYNTHROID [Suspect]
     Active Substance: LEVOTHYROXINE SODIUM
     Indication: HYPOTHYROIDISM
     Route: 048

REACTIONS (12)
  - Muscular weakness [None]
  - Product complaint [None]
  - Myalgia [None]
  - Memory impairment [None]
  - Hair texture abnormal [None]
  - Joint swelling [None]
  - Manufacturing materials issue [None]
  - Dyspnoea [None]
  - Weight increased [None]
  - Heart rate decreased [None]
  - Chest discomfort [None]
  - Pain in extremity [None]

NARRATIVE: CASE EVENT DATE: 201809
